FAERS Safety Report 5210843-2 (Version None)
Quarter: 2007Q1

REPORT INFORMATION
  Report Type: 
  Country: None (occurrence: None)
  Receive Date: 20070117
  Receipt Date: 20070108
  Transmission Date: 20070707
  Serious: Yes (Other)
  Sender: FDA-Public Use
  Company Number: FR-PFIZER INC-2007003750

PATIENT
  Age: 78 Year
  Sex: Female

DRUGS (6)
  1. ALDACTONE [Suspect]
     Indication: CARDIAC FAILURE
     Route: 048
  2. PERINDOPRIL ERBUMINE [Suspect]
     Indication: CARDIAC FAILURE
     Route: 048
  3. ATACAND [Suspect]
     Indication: CARDIAC FAILURE
     Route: 048
  4. DESLORATADINE [Concomitant]
     Indication: RHINITIS ALLERGIC
     Route: 048
  5. OMEPRAZOLE [Concomitant]
     Indication: GASTRITIS
     Route: 048
  6. PREVISCAN [Concomitant]
     Route: 048

REACTIONS (3)
  - DYSPNOEA [None]
  - HYPOTENSION [None]
  - VERTIGO [None]
